FAERS Safety Report 9851400 (Version 2)
Quarter: 2014Q1

REPORT INFORMATION
  Report Type: Spontaneous
  Country: US (occurrence: US)
  Receive Date: 20140129
  Receipt Date: 20140324
  Transmission Date: 20141002
  Serious: Yes (Other)
  Sender: FDA-Public Use
  Company Number: US-BEH-2014040267

PATIENT
  Age: 60 Year
  Sex: Female

DRUGS (2)
  1. ZEMAIRA [Suspect]
     Route: 042
     Dates: start: 20131227
  2. LEVAQUIN [Concomitant]
     Indication: LOWER RESPIRATORY TRACT INFECTION
     Dates: start: 20131222

REACTIONS (1)
  - Pneumonia [Recovered/Resolved]
